FAERS Safety Report 5833401-5 (Version None)
Quarter: 2008Q3

REPORT INFORMATION
  Report Type: 
  Country: None (occurrence: None)
  Receive Date: 20080805
  Receipt Date: 20080728
  Transmission Date: 20090109
  Serious: Yes (Hospitalization)
  Sender: FDA-Public Use
  Company Number: BR-ASTRAZENECA-2008UW14724

PATIENT
  Age: 70 Year
  Sex: Male
  Weight: 94 kg

DRUGS (2)
  1. ATENOL [Suspect]
     Indication: HYPERTENSION
     Route: 048
  2. AMARYL [Concomitant]
     Indication: DIABETES MELLITUS
     Route: 048

REACTIONS (2)
  - ARRHYTHMIA [None]
  - MALAISE [None]
